FAERS Safety Report 15259967 (Version 2)
Quarter: 2018Q4

REPORT INFORMATION
  Report Type: Spontaneous
  Country: US (occurrence: US)
  Receive Date: 20180809
  Receipt Date: 20181004
  Transmission Date: 20190204
  Serious: No
  Sender: FDA-Public Use
  Company Number: US-PFIZER INC-2018317021

PATIENT
  Age: 38 Year
  Sex: Female

DRUGS (19)
  1. LYRICA [Suspect]
     Active Substance: PREGABALIN
     Indication: CHRONIC FATIGUE SYNDROME
  2. LYRICA [Suspect]
     Active Substance: PREGABALIN
     Indication: HYPERGAMMAGLOBULINAEMIA BENIGN MONOCLONAL
     Dosage: 50 MG, 2X/DAY (1 IN THE MORNING AND 1 AT NIGHT)
  3. LYRICA [Suspect]
     Active Substance: PREGABALIN
     Indication: DYSBACTERIOSIS
  4. LYRICA [Suspect]
     Active Substance: PREGABALIN
     Indication: GADOLINIUM DEPOSITION DISEASE
  5. LYRICA [Suspect]
     Active Substance: PREGABALIN
     Indication: POST HERPETIC NEURALGIA
  6. VITAMIN D3 [Concomitant]
     Active Substance: CHOLECALCIFEROL
     Indication: IMMUNE SYSTEM DISORDER
     Dosage: 5000 IU, DAILY
     Dates: start: 201408
  7. LYRICA [Suspect]
     Active Substance: PREGABALIN
     Indication: AUTOIMMUNE THYROIDITIS
  8. ACELLA-NP THYROID [Concomitant]
     Indication: THYROID DISORDER
     Dosage: 90 UG, DAILY
     Dates: start: 2014
  9. LIPOSOMAL VITAMIN C [Concomitant]
     Indication: IMMUNE SYSTEM DISORDER
     Dosage: UNK (1000/DAY)
  10. L-GLUTAMINE [GLUTAMIC ACID] [Concomitant]
     Dosage: 5000 MG, DAILY
     Dates: start: 201408
  11. LYRICA [Suspect]
     Active Substance: PREGABALIN
     Indication: NEUROPATHY PERIPHERAL
     Dosage: 100 MG, UNK
  12. LYRICA [Suspect]
     Active Substance: PREGABALIN
     Indication: DIABETIC NEUROPATHY
  13. COLESTIPOL [Concomitant]
     Active Substance: COLESTIPOL
     Indication: DYSPEPSIA
     Dosage: 1 DF, 3X/DAY (1 PEAL/MEAL)
     Dates: start: 2015
  14. XYZAL [Concomitant]
     Active Substance: LEVOCETIRIZINE DIHYDROCHLORIDE
     Indication: HYPERSENSITIVITY
     Dosage: UNK, DAILY (1 DAY)
     Dates: start: 201804
  15. LYRICA [Suspect]
     Active Substance: PREGABALIN
     Indication: SJOGREN^S SYNDROME
     Dosage: 100 MG, DAILY (TWO 50 MG AT NIGHT)
  16. LYRICA [Suspect]
     Active Substance: PREGABALIN
     Indication: RHEUMATOID ARTHRITIS
  17. LYRICA [Suspect]
     Active Substance: PREGABALIN
     Indication: IMPAIRED GASTRIC EMPTYING
  18. LYRICA [Suspect]
     Active Substance: PREGABALIN
     Indication: SPINAL CORD INJURY
  19. ALPHA LIPOIC ACID [Concomitant]
     Active Substance: .ALPHA.-LIPOIC ACID
     Dosage: 600 MG, DAILY
     Dates: start: 2018

REACTIONS (10)
  - Drug intolerance [Recovered/Resolved]
  - Amnesia [Unknown]
  - Feeling of relaxation [Not Recovered/Not Resolved]
  - Drug ineffective [Recovered/Resolved]
  - Arthralgia [Not Recovered/Not Resolved]
  - Abdominal pain upper [Unknown]
  - Pain [Unknown]
  - Thinking abnormal [Unknown]
  - Hypotonia [Unknown]
  - Intentional product misuse [Unknown]

NARRATIVE: CASE EVENT DATE: 201804
